FAERS Safety Report 9852017 (Version 2)
Quarter: 2014Q1

REPORT INFORMATION
  Report Type: Spontaneous
  Country: US (occurrence: US)
  Receive Date: 20140129
  Receipt Date: 20140210
  Transmission Date: 20141002
  Serious: Yes (Other)
  Sender: FDA-Public Use
  Company Number: US-PFIZER INC-2014025938

PATIENT
  Sex: Male

DRUGS (1)
  1. CHANTIX [Suspect]
     Indication: SMOKING CESSATION THERAPY
     Dosage: UNK
     Dates: start: 201310, end: 2013

REACTIONS (5)
  - Rash generalised [Unknown]
  - Skin exfoliation [Unknown]
  - Abnormal dreams [Unknown]
  - Anger [Unknown]
  - Screaming [Unknown]
